FAERS Safety Report 9999577 (Version 1)
Quarter: 2014Q1

REPORT INFORMATION
  Report Type: Spontaneous
  Country: US (occurrence: None)
  Receive Date: 20140311
  Receipt Date: 20140311
  Transmission Date: 20141002
  Serious: Yes (Hospitalization)
  Sender: FDA-Public Use
  Company Number: None

PATIENT
  Age: 70 Year
  Sex: Male
  Weight: 80 kg

DRUGS (2)
  1. RITUXIMAB [Suspect]
     Route: 042
     Dates: start: 20130530, end: 20130530
  2. RITUXIMAB [Suspect]
     Route: 042
     Dates: start: 20130531, end: 20130531

REACTIONS (3)
  - Chest pain [None]
  - Angina pectoris [None]
  - Electrocardiogram ST segment abnormal [None]
